FAERS Safety Report 7237567-4 (Version None)
Quarter: 2011Q1

REPORT INFORMATION
  Report Type: 
  Country: None (occurrence: None)
  Receive Date: 20110121
  Receipt Date: 20110110
  Transmission Date: 20110831
  Serious: Yes (Hospitalization)
  Sender: FDA-Public Use
  Company Number: US-CELGENEUS-163-20785-10122769

PATIENT
  Age: 73 Year
  Sex: Male
  Weight: 104.42 kg

DRUGS (21)
  1. ATIVAN [Concomitant]
     Indication: TREMOR
     Route: 048
  2. COUMADIN [Concomitant]
     Route: 065
     Dates: start: 20101013
  3. LEXAPRO [Concomitant]
     Indication: DEPRESSION
     Route: 065
  4. HYDROCODONE [Concomitant]
     Route: 065
  5. DEXAMETHASONE [Suspect]
     Indication: MULTIPLE MYELOMA
     Route: 048
     Dates: start: 20100808, end: 20101117
  6. MELOXICAM [Concomitant]
     Indication: PAIN
     Route: 065
  7. NAMENDA [Concomitant]
     Route: 065
  8. POTASSIUM [Concomitant]
     Indication: PROPHYLAXIS
     Route: 065
  9. PROPRANOLOL [Concomitant]
     Indication: HYPERTENSION
     Route: 065
  10. SIMVASTATIN [Concomitant]
     Route: 065
  11. RANITIDINE [Concomitant]
     Indication: REFLUX GASTRITIS
     Route: 065
  12. DEXILANT [Concomitant]
     Indication: REFLUX GASTRITIS
     Route: 065
  13. THALOMID [Suspect]
     Indication: MULTIPLE MYELOMA
     Route: 048
     Dates: start: 20100813, end: 20101117
  14. LASIX [Concomitant]
     Indication: HYPERTENSION
     Route: 065
  15. NIASPAN [Concomitant]
     Route: 065
  16. ALLOPURINOL [Concomitant]
     Indication: GOUT
     Route: 065
  17. PRIMIDONE [Concomitant]
     Indication: TREMOR
     Route: 048
  18. RAPAFLO [Concomitant]
     Route: 065
  19. FOLIC ACID [Concomitant]
     Route: 065
  20. LEVOTHROID [Concomitant]
     Indication: HYPOTHYROIDISM
     Route: 065
  21. FLOMAX [Concomitant]
     Route: 065

REACTIONS (2)
  - URINARY TRACT INFECTION STAPHYLOCOCCAL [None]
  - PNEUMONIA [None]
